FAERS Safety Report 8083190-1 (Version None)
Quarter: 2012Q1

REPORT INFORMATION
  Report Type: 
  Country: None (occurrence: None)
  Receive Date: 20120127
  Receipt Date: 20110202
  Transmission Date: 20120608
  Serious: No
  Sender: FDA-Public Use
  Company Number: US-ABBOTT-11P-163-0702170-00

PATIENT
  Sex: Female

DRUGS (3)
  1. ZITHROMAX [Concomitant]
     Indication: NASOPHARYNGITIS
     Dates: start: 20101001, end: 20101001
  2. HUMIRA [Suspect]
     Route: 058
     Dates: start: 20101209
  3. HUMIRA [Suspect]
     Indication: ANKYLOSING SPONDYLITIS
     Route: 058
     Dates: start: 20101012, end: 20101012

REACTIONS (5)
  - PAIN [None]
  - NASAL CONGESTION [None]
  - RHINORRHOEA [None]
  - COUGH [None]
  - PYREXIA [None]
